FAERS Safety Report 12154010 (Version 1)
Quarter: 2016Q1

REPORT INFORMATION
  Report Type: Spontaneous
  Country: US (occurrence: None)
  Receive Date: 20160304
  Receipt Date: 20160304
  Transmission Date: 20160526
  Serious: No
  Sender: FDA-Public Use
  Company Number: None

PATIENT
  Age: 65 Year
  Sex: Male
  Weight: 83.92 kg

DRUGS (7)
  1. CHONDROITIN [Concomitant]
     Active Substance: CHONDROITIN
  2. VITAMIN D [Concomitant]
     Active Substance: CHOLECALCIFEROL
  3. BABY ASPIRIN [Concomitant]
     Active Substance: ASPIRIN
  4. TAMSULOSIN (GENERIC FLOMAX) [Suspect]
     Active Substance: TAMSULOSIN
     Indication: POLLAKIURIA
     Dosage: 1 PILL ONCE A DAY MOUTH
     Route: 048
     Dates: start: 201502, end: 201511
  5. GLUCOSAMINE [Concomitant]
     Active Substance: GLUCOSAMINE
  6. ACIDOPHILUS [Concomitant]
     Active Substance: LACTOBACILLUS ACIDOPHILUS
  7. TAMSULOSIN (GENERIC FLOMAX) [Suspect]
     Active Substance: TAMSULOSIN
     Indication: URINARY RETENTION
     Dosage: 1 PILL ONCE A DAY MOUTH
     Route: 048
     Dates: start: 201502, end: 201511

REACTIONS (2)
  - Pruritus [None]
  - Rash [None]

NARRATIVE: CASE EVENT DATE: 201511
